FAERS Safety Report 6535458-5 (Version None)
Quarter: 2010Q1

REPORT INFORMATION
  Report Type: 
  Country: None (occurrence: None)
  Receive Date: 20100113
  Receipt Date: 20091231
  Transmission Date: 20100710
  Serious: No
  Sender: FDA-Public Use
  Company Number: US-B.I. PHARMACEUTICALS,INC./RIDGEFIELD-2010-BP-00114BP

PATIENT
  Sex: Female

DRUGS (18)
  1. SPIRIVA [Suspect]
     Indication: CHRONIC OBSTRUCTIVE PULMONARY DISEASE
     Dosage: 18 MCG
     Route: 055
     Dates: start: 20070101
  2. SPIRIVA [Suspect]
     Indication: EMPHYSEMA
  3. ALBUTEROL [Concomitant]
     Indication: CHRONIC OBSTRUCTIVE PULMONARY DISEASE
  4. ALBUTEROL [Concomitant]
     Indication: EMPHYSEMA
  5. OXYCODONE HYDROCHLORIDE [Concomitant]
     Indication: FIBROMYALGIA
  6. PROTONIX [Concomitant]
     Indication: GASTROOESOPHAGEAL REFLUX DISEASE
  7. XANEX [Concomitant]
     Indication: ANXIETY
  8. CITALOPRAM [Concomitant]
     Indication: ANXIETY
  9. PERPHENAZINE [Concomitant]
     Indication: ANXIETY
  10. COZAAR [Concomitant]
     Indication: DIABETES MELLITUS
  11. METFORMIN HYDROCHLORIDE [Concomitant]
     Indication: DIABETES MELLITUS
  12. GLIPIZIDE [Concomitant]
     Indication: DIABETES MELLITUS
  13. SIMVASTATIN [Concomitant]
     Indication: DIABETES MELLITUS
  14. TRAZODONE HCL [Concomitant]
     Indication: SLEEP DISORDER
  15. LEVOTHROID [Concomitant]
     Indication: HYPOTHYROIDISM
  16. ASPIRIN [Concomitant]
     Indication: PROPHYLAXIS
  17. POTASSIUM [Concomitant]
     Indication: PROPHYLAXIS
  18. MAGNESIUM [Concomitant]
     Indication: PROPHYLAXIS

REACTIONS (3)
  - CONSTIPATION [None]
  - DRY MOUTH [None]
  - INCORRECT ROUTE OF DRUG ADMINISTRATION [None]
